FAERS Safety Report 5611709-6 (Version None)
Quarter: 2008Q1

REPORT INFORMATION
  Report Type: 
  Country: None (occurrence: None)
  Receive Date: 20080201
  Receipt Date: 20080123
  Transmission Date: 20080703
  Serious: Yes (Other)
  Sender: FDA-Public Use
  Company Number: US-MERCK-0705USA00821

PATIENT
  Age: 62 Year
  Sex: Female

DRUGS (4)
  1. FOSAMAX [Suspect]
     Indication: OSTEOPOROSIS
     Route: 048
     Dates: start: 20010402, end: 20050701
  2. ADVAIR DISKUS 100/50 [Concomitant]
     Route: 065
     Dates: start: 20020509
  3. ZYRTEC [Concomitant]
     Route: 065
     Dates: start: 20020509, end: 20061205
  4. ACIPHEX [Concomitant]
     Route: 065
     Dates: start: 20020529, end: 20060710

REACTIONS (11)
  - DEPRESSION [None]
  - DIARRHOEA [None]
  - GASTROOESOPHAGEAL REFLUX DISEASE [None]
  - HAEMATOMA [None]
  - HYPERTENSION [None]
  - LIPIDS INCREASED [None]
  - OEDEMA MOUTH [None]
  - OSTEOMYELITIS CHRONIC [None]
  - OSTEONECROSIS [None]
  - SINUSITIS [None]
  - TOOTH DISORDER [None]
